FAERS Safety Report 6588887-8 (Version None)
Quarter: 2010Q1

REPORT INFORMATION
  Report Type: 
  Country: None (occurrence: None)
  Receive Date: 20100218
  Receipt Date: 20100211
  Transmission Date: 20100710
  Serious: Yes (Hospitalization)
  Sender: FDA-Public Use
  Company Number: B0634317A

PATIENT
  Sex: Female
  Weight: 64 kg

DRUGS (4)
  1. LAPATINIB [Suspect]
     Indication: BREAST CANCER
     Dosage: 1250MG PER DAY
     Route: 048
     Dates: start: 20090824
  2. DOCETAXEL [Suspect]
     Indication: BREAST CANCER
     Dosage: 172MG FOUR TIMES PER DAY
     Route: 042
     Dates: start: 20091117
  3. EPIRUBICIN [Suspect]
     Route: 065
  4. CYCLOPHOSPHAMIDE [Suspect]
     Indication: BREAST CANCER

REACTIONS (3)
  - FEBRILE NEUTROPENIA [None]
  - LEUKOCYTOSIS [None]
  - UPPER RESPIRATORY TRACT INFECTION [None]
